FAERS Safety Report 12988371 (Version 2)
Quarter: 2016Q4

REPORT INFORMATION
  Report Type: Report from Study
  Country: None (occurrence: AR)
  Receive Date: 20161130
  Receipt Date: 20161206
  Transmission Date: 20170207
  Serious: Yes (Other)
  Sender: FDA-Public Use
  Company Number: AR-ABBVIE-16P-007-1796342-00

PATIENT
  Age: 68 Year
  Sex: Male

DRUGS (1)
  1. PARICALCITOL. [Suspect]
     Active Substance: PARICALCITOL
     Indication: HYPERPARATHYROIDISM SECONDARY
     Route: 042
     Dates: start: 20120101

REACTIONS (4)
  - Thrombosis [Recovering/Resolving]
  - Pain [Unknown]
  - Hip fracture [Recovering/Resolving]
  - Monoplegia [Unknown]

NARRATIVE: CASE EVENT DATE: 20161110
